APPROVED DRUG PRODUCT: COTEMPLA XR-ODT
Active Ingredient: METHYLPHENIDATE
Strength: 17.3MG
Dosage Form/Route: TABLET, ORALLY DISINTEGRATING, EXTENDED RELEASE;ORAL
Application: N205489 | Product #002
Applicant: NEOS THERAPEUTICS INC
Approved: Jun 19, 2017 | RLD: Yes | RS: No | Type: RX

PATENTS:
Patent 11166947 | Expires: Jan 25, 2038
Patent 9089496 | Expires: Jun 28, 2032
Patent 8840924 | Expires: Jun 5, 2026
Patent 9072680 | Expires: Jun 28, 2032